FAERS Safety Report 8429723-4 (Version None)
Quarter: 2012Q2

REPORT INFORMATION
  Report Type: 
  Country: None (occurrence: None)
  Receive Date: 20120612
  Receipt Date: 20120612
  Transmission Date: 20120825
  Serious: Yes (Hospitalization)
  Sender: FDA-Public Use
  Company Number: US-PFIZER INC-2012131455

PATIENT
  Sex: Female
  Weight: 68 kg

DRUGS (3)
  1. NORVASC [Suspect]
     Indication: HYPERTENSION
     Dosage: UNK
     Dates: start: 19940101
  2. SPIRONOLACTONE [Interacting]
     Indication: RENAL DISORDER
     Dosage: 25 MG, DAILY
     Dates: start: 20120301
  3. NORVASC [Interacting]
     Dosage: 5 MG, AS NEEDED

REACTIONS (5)
  - DRUG INTERACTION [None]
  - FLUSHING [None]
  - BLOOD POTASSIUM INCREASED [None]
  - BLOOD SODIUM DECREASED [None]
  - VITAMIN D DECREASED [None]
